FAERS Safety Report 17018528 (Version 1)
Quarter: 2019Q4

REPORT INFORMATION
  Report Type: Report from Study
  Country: US (occurrence: US)
  Receive Date: 20191111
  Receipt Date: 20191111
  Transmission Date: 20200122
  Serious: Yes (Other)
  Sender: FDA-Public Use
  Company Number: NVSC2019US009444

PATIENT
  Age: 29 Year
  Sex: Female
  Weight: 82.09 kg

DRUGS (3)
  1. BENZONATATE. [Concomitant]
     Active Substance: BENZONATATE
     Indication: PRODUCT USED FOR UNKNOWN INDICATION
     Route: 065
  2. ILARIS [Suspect]
     Active Substance: CANAKINUMAB
     Indication: CRYOPYRIN ASSOCIATED PERIODIC SYNDROME
     Dosage: 150 MG, EVERY 4 WEEKS/QMO
     Route: 058
     Dates: start: 20190904
  3. ZYRTEC [Concomitant]
     Active Substance: CETIRIZINE HYDROCHLORIDE
     Indication: PRODUCT USED FOR UNKNOWN INDICATION
     Route: 065

REACTIONS (14)
  - Arthralgia [Not Recovered/Not Resolved]
  - Cryopyrin associated periodic syndrome [Not Recovered/Not Resolved]
  - Insomnia [Unknown]
  - Skin hyperpigmentation [Unknown]
  - Peripheral swelling [Unknown]
  - Abdominal distension [Unknown]
  - Rash [Unknown]
  - Condition aggravated [Not Recovered/Not Resolved]
  - Vision blurred [Unknown]
  - Pyrexia [Not Recovered/Not Resolved]
  - Pruritus [Unknown]
  - Inflammation [Unknown]
  - Swelling face [Unknown]
  - Dyspepsia [Unknown]

NARRATIVE: CASE EVENT DATE: 20190904
